FAERS Safety Report 8838255 (Version 1)
Quarter: 2012Q4

REPORT INFORMATION
  Report Type: 
  Country: JP (occurrence: JP)
  Receive Date: 20121012
  Receipt Date: 20121012
  Transmission Date: 20130627
  Serious: Yes (Other)
  Sender: FDA-Public Use
  Company Number: JP-BRISTOL-MYERS SQUIBB COMPANY-17010828

PATIENT
  Age: 19 Year
  Sex: Male

DRUGS (4)
  1. CISPLATIN [Suspect]
  2. BLEOMYCIN SULFATE [Suspect]
  3. ETOPOSIDE [Suspect]
  4. METHOTREXATE [Suspect]
     Indication: JUVENILE ARTHRITIS

REACTIONS (2)
  - Bone marrow failure [Unknown]
  - Stomatitis [Unknown]
